FAERS Safety Report 8574526 (Version 3)
Quarter: 2013Q3

REPORT INFORMATION
  Report Type: Spontaneous
  Country: US (occurrence: US)
  Receive Date: 20120522
  Receipt Date: 20130719
  Transmission Date: 20140515
  Serious: Yes (Hospitalization)
  Sender: FDA-Public Use
  Company Number: US-ASTRAZENECA-2012SE29394

PATIENT
  Age: 65 Year
  Sex: Female

DRUGS (11)
  1. SYMBICORT PMDI [Suspect]
     Indication: ASTHMA
     Dosage: 160/4.5 MCG, DAILY
     Route: 055
  2. SYMBICORT PMDI [Suspect]
     Indication: ASTHMA
     Dosage: 160 MCG, 2 PUFFS, TWO TIMES A DAY
     Route: 055
     Dates: start: 201003
  3. NEXIUM [Suspect]
     Indication: GASTROOESOPHAGEAL REFLUX DISEASE
     Route: 048
     Dates: start: 2000, end: 2011
  4. OMEPRAZOLE [Suspect]
     Indication: GASTROOESOPHAGEAL REFLUX DISEASE
     Route: 048
     Dates: start: 2011
  5. DILTIAZEM [Concomitant]
     Indication: BLOOD PRESSURE ABNORMAL
     Route: 048
     Dates: start: 201210
  6. LOSARTAN [Concomitant]
     Indication: BLOOD PRESSURE ABNORMAL
     Route: 048
     Dates: start: 201210
  7. CELEBREX [Concomitant]
     Indication: ARTHRITIS
     Route: 048
     Dates: start: 201210
  8. LEVOTHYROXINE [Concomitant]
     Indication: THYROID DISORDER
     Route: 048
     Dates: start: 2001
  9. CALTRATE D [Concomitant]
     Dosage: 600 D BID
     Route: 048
  10. ASPIRIN [Concomitant]
     Dates: start: 201203
  11. POTASSIUM [Concomitant]
     Indication: MUSCLE SPASMS
     Route: 048

REACTIONS (8)
  - Haemorrhage [Unknown]
  - Colitis [Recovering/Resolving]
  - Large intestinal ulcer [Unknown]
  - Dyspnoea [Unknown]
  - Hypertension [Unknown]
  - Intentional drug misuse [Unknown]
  - Drug dose omission [Unknown]
  - Drug ineffective [Unknown]
